FAERS Safety Report 24451243 (Version 2)
Quarter: 2024Q4

REPORT INFORMATION
  Report Type: Spontaneous
  Country: JP (occurrence: JP)
  Receive Date: 20241017
  Receipt Date: 20241107
  Transmission Date: 20250115
  Serious: Yes (Disabling, Other)
  Sender: BOEHRINGER INGELHEIM
  Company Number: JP-NBI-2024-BI-057370

PATIENT
  Age: 82 Year
  Sex: Female
  Weight: 48.0 kg

DRUGS (10)
  1. LINAGLIPTIN [Suspect]
     Active Substance: LINAGLIPTIN
     Indication: Type 2 diabetes mellitus
     Dosage: AFTER BREAKFAST
     Route: 048
  2. VALSARTAN [Concomitant]
     Active Substance: VALSARTAN
     Indication: Product used for unknown indication
     Dosage: AFTER BREAKFAST
     Route: 048
  3. CILNIDIPINE [Concomitant]
     Active Substance: CILNIDIPINE
     Indication: Product used for unknown indication
     Dosage: AFTER BREAKFAST
     Route: 048
  4. BISOPROLOL [Concomitant]
     Active Substance: BISOPROLOL\BISOPROLOL FUMARATE
     Indication: Product used for unknown indication
     Dosage: AFTER BREAKFAST
     Route: 048
  5. MIRABEGRON [Concomitant]
     Active Substance: MIRABEGRON
     Indication: Product used for unknown indication
     Dosage: AFTER BREAKFAST
     Route: 048
  6. SOLIFENACIN SUCCINATE [Concomitant]
     Active Substance: SOLIFENACIN SUCCINATE
     Indication: Product used for unknown indication
     Dosage: AFTER BREAKFAST
     Route: 048
  7. FLUVASTATIN [Concomitant]
     Active Substance: FLUVASTATIN SODIUM
     Indication: Product used for unknown indication
     Dosage: AFTER DINNER
     Route: 048
  8. OPALMON [Concomitant]
     Active Substance: LIMAPROST
     Indication: Product used for unknown indication
     Dosage: AFTER BREAKFAST AND DINNER
     Route: 048
  9. TOCOPHERYL NICOTINATE, D-.ALPHA. [Concomitant]
     Active Substance: TOCOPHERYL NICOTINATE, D-.ALPHA.
     Indication: Product used for unknown indication
     Dosage: AFTER BREAKFAST AND DINNER
     Route: 048
  10. AMARYL [Concomitant]
     Active Substance: GLIMEPIRIDE
     Indication: Product used for unknown indication
     Dosage: AFTER BREAKFAST AND DINNER
     Route: 048

REACTIONS (3)
  - Pulmonary hypertension [Not Recovered/Not Resolved]
  - Pulmonary artery thrombosis [Unknown]
  - Dyspnoea exertional [Recovering/Resolving]

NARRATIVE: CASE EVENT DATE: 20230801
